FAERS Safety Report 6208239-X (Version None)
Quarter: 2009Q2

REPORT INFORMATION
  Report Type: 
  Country: None (occurrence: None)
  Receive Date: 20090529
  Receipt Date: 20090526
  Transmission Date: 20091009
  Serious: Yes (Other)
  Sender: FDA-Public Use
  Company Number: DE-ALLERGAN-0907275US

PATIENT
  Age: 87 Year
  Sex: Female

DRUGS (3)
  1. GANFORT [Suspect]
     Indication: GLAUCOMA
     Dosage: UNK, QD
     Route: 047
     Dates: start: 20070618
  2. ASPIRIN [Concomitant]
  3. METOPROLOL SUCCINATE [Concomitant]

REACTIONS (2)
  - ARRHYTHMIA [None]
  - VISUAL ACUITY REDUCED [None]
